FAERS Safety Report 5336814-3 (Version None)
Quarter: 2007Q2

REPORT INFORMATION
  Report Type: 
  Country: None (occurrence: None)
  Receive Date: 20070529
  Receipt Date: 20070516
  Transmission Date: 20071010
  Serious: Yes (Other)
  Sender: FDA-Public Use
  Company Number: PHBS2005BR11949

PATIENT
  Age: 59 Year
  Sex: Female
  Weight: 95 kg

DRUGS (7)
  1. FORADIL [Suspect]
     Indication: ASTHMA
     Dosage: 12 UG, PRN
     Dates: start: 20010101
  2. SYNTHROID [Concomitant]
     Indication: HYPOTHYROIDISM
     Dosage: UNK, QD
     Route: 048
     Dates: start: 20050501, end: 20060701
  3. GEMFIBROZIL [Concomitant]
     Indication: BLOOD TRIGLYCERIDES
     Dosage: 600 MG, QD
     Route: 048
     Dates: start: 19960101
  4. ASPIRIN [Concomitant]
     Indication: PERIPHERAL VASCULAR DISORDER
     Dosage: 100 MG, QD
     Route: 048
     Dates: start: 20041101
  5. PURAN T4 [Concomitant]
     Dates: start: 20060701
  6. LOSARTAN POTASSIUM [Concomitant]
     Indication: HYPERTENSION
     Route: 048
  7. LEXOTAN [Concomitant]
     Indication: ANXIETY
     Dosage: 3 MG/DAY
     Route: 048

REACTIONS (11)
  - ANXIETY [None]
  - CARDIOMEGALY [None]
  - CHEST DISCOMFORT [None]
  - COUGH [None]
  - DYSPNOEA [None]
  - ECHOCARDIOGRAM ABNORMAL [None]
  - INFLUENZA [None]
  - PALPITATIONS [None]
  - TACHYCARDIA [None]
  - THROAT IRRITATION [None]
  - TREMOR [None]
